FAERS Safety Report 6156437-6 (Version None)
Quarter: 2009Q2

REPORT INFORMATION
  Report Type: 
  Country: None (occurrence: None)
  Receive Date: 20090413
  Receipt Date: 20090327
  Transmission Date: 20091009
  Serious: Yes (Hospitalization, Other)
  Sender: FDA-Public Use
  Company Number: 232766K09USA

PATIENT
  Age: 60 Year
  Sex: Female

DRUGS (8)
  1. REBIF [Suspect]
     Indication: MULTIPLE SCLEROSIS
     Dosage: 44 MCG, 3 IN 1 WEEKS, SUBCUTANEOUS
     Route: 058
     Dates: start: 20040913
  2. FLEXERIL [Suspect]
     Indication: SPINAL FRACTURE
     Dates: start: 20090101, end: 20090101
  3. FENTANYL [Suspect]
     Indication: PAIN
  4. BACLOFEN [Concomitant]
  5. BOTOX (BOTULINUM TOXIN TYPE A) [Concomitant]
  6. ACTONEL [Concomitant]
  7. XANAX [Concomitant]
  8. UNSPECIFIED ANTIDEPRESSANT MEDICATION (ANTIDEPRESSANTS) [Concomitant]

REACTIONS (11)
  - AMNESIA [None]
  - AORTIC ANEURYSM [None]
  - BEREAVEMENT REACTION [None]
  - DISORIENTATION [None]
  - DRUG WITHDRAWAL SYNDROME [None]
  - HALLUCINATION [None]
  - LIMB INJURY [None]
  - MUSCLE STRAIN [None]
  - SPINAL FRACTURE [None]
  - THIRST [None]
  - THROMBOSIS [None]
